FAERS Safety Report 12600455 (Version 1)
Quarter: 2016Q3

REPORT INFORMATION
  Report Type: Spontaneous
  Country: US (occurrence: US)
  Receive Date: 20160727
  Receipt Date: 20160727
  Transmission Date: 20161109
  Serious: No
  Sender: FDA-Public Use
  Company Number: US-ACTELION-A-US2016-139637

PATIENT
  Age: 78 Year
  Sex: Female

DRUGS (10)
  1. VALCHLOR [Suspect]
     Active Substance: MECHLORETHAMINE
     Indication: MYCOSIS FUNGOIDES
     Dosage: UNK
     Route: 061
     Dates: start: 20160607
  2. VICTOZA [Concomitant]
     Active Substance: LIRAGLUTIDE
  3. METOPROLOL. [Concomitant]
     Active Substance: METOPROLOL
  4. ASPIRIN. [Concomitant]
     Active Substance: ASPIRIN
  5. CYCLOBENZAPRINE [Concomitant]
     Active Substance: CYCLOBENZAPRINE
  6. NOVOLOG [Concomitant]
     Active Substance: INSULIN ASPART
  7. QUINAPRIL. [Concomitant]
     Active Substance: QUINAPRIL
  8. LEVEMIR [Concomitant]
     Active Substance: INSULIN DETEMIR
  9. PANTOPRAZOLE [Concomitant]
     Active Substance: PANTOPRAZOLE SODIUM
  10. ZYRTEC [Concomitant]
     Active Substance: CETIRIZINE HYDROCHLORIDE

REACTIONS (2)
  - Intestinal cyst [Unknown]
  - Cardiac disorder [Unknown]
